FAERS Safety Report 8347789 (Version 2)
Quarter: 2018Q4

REPORT INFORMATION
  Report Type: Spontaneous
  Country: US (occurrence: US)
  Receive Date: 20120122
  Receipt Date: 20181002
  Transmission Date: 20190205
  Serious: Yes (Other)
  Sender: FDA-Public Use
  Company Number: US-ROCHE-1000997

PATIENT
  Age: 56 Year
  Sex: Female

DRUGS (2)
  1. FOSAMAX PLUS D [Suspect]
     Active Substance: ALENDRONATE SODIUM\CHOLECALCIFEROL
     Indication: OSTEOPENIA
     Route: 065
     Dates: start: 200507, end: 200607
  2. BONIVA [Suspect]
     Active Substance: IBANDRONATE SODIUM
     Indication: OSTEOPOROSIS
     Route: 048
     Dates: start: 200607, end: 200905

REACTIONS (5)
  - Femur fracture [Unknown]
  - Depression [Unknown]
  - Thermal burn [Unknown]
  - Ear pain [Unknown]
  - Acute sinusitis [Unknown]

NARRATIVE: CASE EVENT DATE: 200704
